FAERS Safety Report 12264348 (Version 1)
Quarter: 2016Q2

REPORT INFORMATION
  Report Type: Spontaneous
  Country: US (occurrence: US)
  Receive Date: 20160413
  Receipt Date: 20160413
  Transmission Date: 20160815
  Serious: Yes (Other)
  Sender: FDA-Public Use
  Company Number: PHEH2016US008830

PATIENT
  Age: 8 Year
  Sex: Male

DRUGS (1)
  1. DEXMETHYLPHENIDATE HYDROCHLORIDE. [Suspect]
     Active Substance: DEXMETHYLPHENIDATE HYDROCHLORIDE
     Indication: ATTENTION DEFICIT/HYPERACTIVITY DISORDER
     Dosage: UNK
     Route: 065
     Dates: start: 20160203, end: 20160215

REACTIONS (6)
  - Aggression [Recovered/Resolved]
  - Paranoia [Recovered/Resolved]
  - Mood altered [Recovering/Resolving]
  - Mood swings [Recovering/Resolving]
  - Anxiety [Recovered/Resolved]
  - Thinking abnormal [Recovered/Resolved]
